FAERS Safety Report 10248170 (Version 1)
Quarter: 2014Q2

REPORT INFORMATION
  Report Type: Spontaneous
  Country: US (occurrence: US)
  Receive Date: 20140620
  Receipt Date: 20140620
  Transmission Date: 20141212
  Serious: Yes (Other)
  Sender: FDA-Public Use
  Company Number: US-ABBVIE-14P-163-1247593-00

PATIENT
  Age: 79 Year
  Sex: Female

DRUGS (1)
  1. SYNTHROID [Suspect]
     Indication: PRODUCT USED FOR UNKNOWN INDICATION
     Route: 048
     Dates: start: 1971, end: 201405

REACTIONS (2)
  - Transient ischaemic attack [Unknown]
  - Lacrimation increased [Not Recovered/Not Resolved]
